FAERS Safety Report 9214348 (Version 1)
Quarter: 2013Q1

REPORT INFORMATION
  Report Type: Spontaneous
  Country: US (occurrence: None)
  Receive Date: 20120827
  Receipt Date: 20120827
  Transmission Date: 20140127
  Serious: No
  Sender: FDA-Public Use
  Company Number: 355434

PATIENT
  Age: 67 Year
  Sex: Female

DRUGS (2)
  1. VICTOZA [Suspect]
     Indication: TYPE 2 DIABETES MELLITUS
     Route: 058
  2. AMARYL (GLIMEPIRIDE) [Suspect]
     Indication: TYPE 2 DIABETES MELLITUS

REACTIONS (2)
  - Weight loss poor [None]
  - Blood glucose increased [None]
